FAERS Safety Report 5005253-7 (Version None)
Quarter: 2006Q2

REPORT INFORMATION
  Report Type: 
  Country: None (occurrence: None)
  Receive Date: 20060515
  Receipt Date: 20060504
  Transmission Date: 20061013
  Serious: Yes (Life-Threatening, Hospitalization)
  Sender: FDA-Public Use
  Company Number: 163-21880-06040363

PATIENT
  Age: 80 Year
  Sex: Female

DRUGS (1)
  1. REVLIMID [Suspect]
     Indication: MYELODYSPLASTIC SYNDROME
     Dosage: 10 MG DAILY ORAL
     Route: 048
     Dates: start: 20060310, end: 20060317

REACTIONS (2)
  - COLD TYPE HAEMOLYTIC ANAEMIA [None]
  - FALL [None]
